FAERS Safety Report 12052267 (Version 1)
Quarter: 2016Q1

REPORT INFORMATION
  Report Type: Spontaneous
  Country: None (occurrence: None)
  Receive Date: 20160208
  Receipt Date: 20160208
  Transmission Date: 20160526
  Serious: Yes (Hospitalization)
  Sender: FDA-Public Use
  Company Number: None

PATIENT
  Age: 55 Year
  Sex: Female
  Weight: 71.67 kg

DRUGS (5)
  1. METFORMIN [Concomitant]
     Active Substance: METFORMIN HYDROCHLORIDE
  2. GLIMEPIRIDE. [Concomitant]
     Active Substance: GLIMEPIRIDE
  3. LEVEMIR [Concomitant]
     Active Substance: INSULIN DETEMIR
  4. VICTOZA [Concomitant]
     Active Substance: LIRAGLUTIDE
  5. INVOKANA [Suspect]
     Active Substance: CANAGLIFLOZIN
     Indication: TYPE 2 DIABETES MELLITUS
     Route: 048
     Dates: start: 20150917, end: 20160111

REACTIONS (2)
  - Dehydration [None]
  - Diabetic ketoacidosis [None]

NARRATIVE: CASE EVENT DATE: 20160111
